FAERS Safety Report 22838692 (Version 9)
Quarter: 2024Q1

REPORT INFORMATION
  Report Type: Spontaneous
  Country: CA (occurrence: CA)
  Receive Date: 20230818
  Receipt Date: 20240326
  Transmission Date: 20240410
  Serious: Yes (Other)
  Sender: FDA-Public Use
  Company Number: CA-PFIZER INC-202300237612

PATIENT
  Age: 33 Year
  Sex: Male

DRUGS (7)
  1. ABRILADA [Suspect]
     Active Substance: ADALIMUMAB-AFZB
     Indication: Colitis ulcerative
     Dosage: 160 MG, W 0 160MG, W2 80MG AND THEN 40MG EVERY OTHER WEEK, PREFILLED PEN
     Route: 058
     Dates: start: 20230624
  2. ABRILADA [Suspect]
     Active Substance: ADALIMUMAB-AFZB
     Dosage: UNK, W 0 160MG, W2 80MG AND THEN 40MG EVERY OTHER WEEK, PREFILLED PEN
     Route: 058
  3. ABRILADA [Suspect]
     Active Substance: ADALIMUMAB-AFZB
     Dosage: UNK, W 0 160MG, W2 80MG AND THEN 40MG EVERY OTHER WEEK, PREFILLED PEN
     Route: 058
     Dates: start: 2023
  4. ABRILADA [Suspect]
     Active Substance: ADALIMUMAB-AFZB
     Dosage: 40 MG, WEEKLY
     Route: 058
  5. AZATHIOPRINE [Concomitant]
     Active Substance: AZATHIOPRINE
     Dosage: 1 DF
  6. PREDNISONE [Concomitant]
     Active Substance: PREDNISONE
     Dosage: 1 DF
  7. PREDNISONE [Concomitant]
     Active Substance: PREDNISONE
     Dosage: 5 MG, DAILY (TAPERED DOWN)

REACTIONS (9)
  - Diarrhoea haemorrhagic [Recovered/Resolved]
  - Off label use [Unknown]
  - Condition aggravated [Recovering/Resolving]
  - Faecal calprotectin increased [Unknown]
  - Fatigue [Recovered/Resolved]
  - Pruritus [Recovered/Resolved]
  - Nasopharyngitis [Recovered/Resolved]
  - Diarrhoea [Recovering/Resolving]
  - COVID-19 [Recovering/Resolving]

NARRATIVE: CASE EVENT DATE: 20230101
